FAERS Safety Report 4999170-6 (Version None)
Quarter: 2006Q2

REPORT INFORMATION
  Report Type: 
  Country: None (occurrence: None)
  Receive Date: 20060511
  Receipt Date: 20060428
  Transmission Date: 20061013
  Serious: Yes (Hospitalization, Other)
  Sender: FDA-Public Use
  Company Number: PHNU2006DE01813

PATIENT
  Age: 86 Year
  Sex: Female

DRUGS (1)
  1. CO-DIOVAN [Suspect]
     Indication: HYPERTENSION
     Dates: start: 20060201

REACTIONS (8)
  - DIZZINESS [None]
  - FALL [None]
  - GENERAL PHYSICAL CONDITION ABNORMAL [None]
  - HYPONATRAEMIA [None]
  - NAUSEA [None]
  - OEDEMA PERIPHERAL [None]
  - THORACIC VERTEBRAL FRACTURE [None]
  - UNRESPONSIVE TO VERBAL STIMULI [None]
